FAERS Safety Report 8630282 (Version 2)
Quarter: 2013Q1

REPORT INFORMATION
  Report Type: Spontaneous
  Country: US (occurrence: None)
  Receive Date: 20120611
  Receipt Date: 20130130
  Transmission Date: 20140127
  Serious: Yes (Life-Threatening, Hospitalization, Congenital Anomaly)
  Sender: FDA-Public Use
  Company Number: DSA_57652_2012

PATIENT
  Sex: Male

DRUGS (1)
  1. WELLBUTRIN [Suspect]
     Indication: PRODUCT USED FOR UNKNOWN INDICATION
     Dosage: (DF TRANSPLACENTAL)
     Route: 064

REACTIONS (7)
  - Foetal exposure during pregnancy [None]
  - Bicuspid aortic valve [None]
  - Hydrocephalus [None]
  - Eye operation [None]
  - Ear tube insertion [None]
  - Maternal drugs affecting foetus [None]
  - Cystic lymphangioma [None]
